FAERS Safety Report 9954434 (Version 1)
Quarter: 2014Q1

REPORT INFORMATION
  Report Type: Spontaneous
  Country: US (occurrence: US)
  Receive Date: 20140304
  Receipt Date: 20140304
  Transmission Date: 20141002
  Serious: Yes (Hospitalization)
  Sender: FDA-Public Use
  Company Number: US-B.I. PHARMACEUTICALS,INC./RIDGEFIELD-2014-BI-08557BP

PATIENT
  Age: 77 Year
  Sex: Female

DRUGS (7)
  1. MIRAPEX [Suspect]
     Indication: RESTLESS LEGS SYNDROME
     Dosage: 1 MG
     Route: 048
     Dates: start: 20111028
  2. MIRAPEX [Suspect]
     Dosage: DAILY DOSE: 1 MG TO 1.5MG PRN AT BEDTIME
     Route: 048
     Dates: start: 201401
  3. MIRAPEX [Suspect]
     Indication: RESTLESS LEGS SYNDROME
     Dosage: FORMULATION: ER TABLETS
     Route: 048
  4. ALENDRONATE [Concomitant]
     Indication: BONE DISORDER
     Dosage: 10 MG
     Route: 048
  5. LORAZEPAM [Concomitant]
     Indication: ANXIETY
     Dosage: 1 MG
     Route: 048
  6. ZOLOFT [Concomitant]
     Indication: DEPRESSION
     Dosage: 100 MG
     Route: 048
  7. ASPIRN [Concomitant]
     Indication: HYPERTENSION
     Dosage: 325 MG
     Route: 048

REACTIONS (2)
  - Atrial fibrillation [Recovered/Resolved]
  - Cardiac failure congestive [Recovered/Resolved]
